FAERS Safety Report 9643395 (Version 2)
Quarter: 2013Q4

REPORT INFORMATION
  Report Type: Spontaneous
  Country: US (occurrence: US)
  Receive Date: 20131024
  Receipt Date: 20131024
  Transmission Date: 20140711
  Serious: Yes (Other)
  Sender: FDA-Public Use
  Company Number: US-UCBSA-095107

PATIENT
  Age: 76 Year
  Sex: Female
  Weight: 59.4 kg

DRUGS (6)
  1. NEUPRO [Suspect]
     Indication: RESTLESS LEGS SYNDROME
     Dates: start: 20130101
  2. SINEMET [Concomitant]
     Indication: PARKINSON^S DISEASE
     Dosage: 25/100
     Route: 048
  3. ASPIRIN [Concomitant]
     Indication: TRANSIENT ISCHAEMIC ATTACK
     Route: 048
  4. BENICAR [Concomitant]
     Indication: HYPERTENSION
     Route: 048
  5. METOPROLOL [Concomitant]
     Indication: HYPERTENSION
     Route: 048
  6. LEVOTHYROXINE [Concomitant]
     Indication: HYPOTHYROIDISM
     Dosage: 50 MG
     Route: 048

REACTIONS (1)
  - Muscle atrophy [Not Recovered/Not Resolved]
